FAERS Safety Report 15962784 (Version 9)
Quarter: 2019Q2

REPORT INFORMATION
  Report Type: Spontaneous
  Country: US (occurrence: US)
  Receive Date: 20190214
  Receipt Date: 20190524
  Transmission Date: 20190711
  Serious: Yes (Hospitalization, Other)
  Sender: FDA-Public Use
  Company Number: US-PFIZER INC-2019062113

PATIENT
  Age: 84 Year
  Sex: Female
  Weight: 43.9 kg

DRUGS (6)
  1. ATACAND [Concomitant]
     Active Substance: CANDESARTAN CILEXETIL
     Indication: HYPERTENSION
     Dosage: 16 MG, 1X/DAY
     Route: 048
  2. ATACAND [Concomitant]
     Active Substance: CANDESARTAN CILEXETIL
     Indication: BLOOD PRESSURE ABNORMAL
  3. PROCARDIA XL [Suspect]
     Active Substance: NIFEDIPINE
     Dosage: 30 MG, 1X/DAY, (30MG GITS EXTENDED-RELEASE TABLET-1 TAKEN BY MOUTH DAILY IN THE EVENING)
     Route: 048
     Dates: start: 2011
  4. PROCARDIA XL [Suspect]
     Active Substance: NIFEDIPINE
     Dosage: 90 MG DAILY (30 MG AT NIGHT AND 60 MG IN THE MORNING)
     Route: 048
  5. PROCARDIA XL [Suspect]
     Active Substance: NIFEDIPINE
     Indication: HYPERTENSION
     Dosage: 90 MG DAILY (30 MG AT NIGHT AND 60 MG IN THE MORNING)
     Route: 048
  6. PROCARDIA XL [Suspect]
     Active Substance: NIFEDIPINE
     Dosage: 60 MG, 1X/DAY, (60MG GITS EXTENDED-RELEASE TABLET-1 TAKEN BY MOUTH IN THE MORNING DAILY)
     Route: 048

REACTIONS (17)
  - Urinary tract disorder [Not Recovered/Not Resolved]
  - Neurogenic bladder [Not Recovered/Not Resolved]
  - Nausea [Not Recovered/Not Resolved]
  - Renal cyst [Unknown]
  - Blood creatinine increased [Unknown]
  - Gastrointestinal disorder [Unknown]
  - Diverticulum intestinal [Unknown]
  - Dizziness [Unknown]
  - Renal disorder [Unknown]
  - Weight decreased [Not Recovered/Not Resolved]
  - Urinary tract infection [Recovered/Resolved]
  - Ischaemia [Unknown]
  - Blood pressure increased [Unknown]
  - Constipation [Not Recovered/Not Resolved]
  - Atelectasis [Unknown]
  - Renal atrophy [Unknown]
  - Aortic aneurysm [Recovered/Resolved]

NARRATIVE: CASE EVENT DATE: 2017
